FAERS Safety Report 13276182 (Version 2)
Quarter: 2017Q1

REPORT INFORMATION
  Report Type: Spontaneous
  Country: US (occurrence: US)
  Receive Date: 20170228
  Receipt Date: 20170310
  Transmission Date: 20170428
  Serious: No
  Sender: FDA-Public Use
  Company Number: US-GLAXOSMITHKLINE-US2017025405

PATIENT
  Age: 30 Year
  Sex: Female

DRUGS (1)
  1. ABREVA [Suspect]
     Active Substance: DOCOSANOL
     Indication: ORAL HERPES
     Dosage: UNK
     Route: 061
     Dates: start: 20170218, end: 20170221

REACTIONS (7)
  - Rash [Not Recovered/Not Resolved]
  - Oral herpes [Not Recovered/Not Resolved]
  - Application site irritation [Unknown]
  - Condition aggravated [Not Recovered/Not Resolved]
  - Application site pain [Not Recovered/Not Resolved]
  - Muscle tightness [Not Recovered/Not Resolved]
  - Inappropriate schedule of drug administration [Unknown]

NARRATIVE: CASE EVENT DATE: 20170218
